FAERS Safety Report 25142485 (Version 1)
Quarter: 2025Q1

REPORT INFORMATION
  Report Type: Spontaneous
  Country: US (occurrence: US)
  Receive Date: 20250331
  Receipt Date: 20250331
  Transmission Date: 20250409
  Serious: No
  Sender: EVOLUS, INC.
  Company Number: US-Evolus, Inc.-2025EV000024

PATIENT

DRUGS (10)
  1. JEUVEAU [Suspect]
     Active Substance: PRABOTULINUMTOXINA-XVFS
     Indication: Skin wrinkling
     Dates: start: 20241114, end: 20241114
  2. JEUVEAU [Suspect]
     Active Substance: PRABOTULINUMTOXINA-XVFS
     Indication: Off label use
     Dates: start: 20241119, end: 20241119
  3. JEUVEAU [Suspect]
     Active Substance: PRABOTULINUMTOXINA-XVFS
     Indication: Skin wrinkling
     Dates: start: 20241119, end: 20241119
  4. JEUVEAU [Suspect]
     Active Substance: PRABOTULINUMTOXINA-XVFS
     Dates: start: 20241204, end: 20241204
  5. JEUVEAU [Suspect]
     Active Substance: PRABOTULINUMTOXINA-XVFS
  6. JEUVEAU [Suspect]
     Active Substance: PRABOTULINUMTOXINA-XVFS
  7. JEUVEAU [Suspect]
     Active Substance: PRABOTULINUMTOXINA-XVFS
  8. JEUVEAU [Suspect]
     Active Substance: PRABOTULINUMTOXINA-XVFS
  9. JEUVEAU [Suspect]
     Active Substance: PRABOTULINUMTOXINA-XVFS
  10. JEUVEAU [Suspect]
     Active Substance: PRABOTULINUMTOXINA-XVFS

REACTIONS (4)
  - Eyelid ptosis [Unknown]
  - Drug effect less than expected [Unknown]
  - Drug ineffective [Unknown]
  - Off label use [Unknown]
